FAERS Safety Report 9163534 (Version 10)
Quarter: 2015Q3

REPORT INFORMATION
  Report Type: Spontaneous
  Country: CA (occurrence: CA)
  Receive Date: 20130314
  Receipt Date: 20150915
  Transmission Date: 20151125
  Serious: Yes (Other)
  Sender: FDA-Public Use
  Company Number: CA-ROCHE-1200873

PATIENT
  Age: 63 Year
  Sex: Female

DRUGS (11)
  1. XOLAIR [Suspect]
     Active Substance: OMALIZUMAB
     Route: 058
     Dates: start: 20130704
  2. SYMBICORT [Concomitant]
     Active Substance: BUDESONIDE\FORMOTEROL FUMARATE DIHYDRATE
  3. XOLAIR [Suspect]
     Active Substance: OMALIZUMAB
     Route: 058
     Dates: start: 20141028
  4. PREDNISONE. [Concomitant]
     Active Substance: PREDNISONE
  5. ALLEGRA [Concomitant]
     Active Substance: FEXOFENADINE HYDROCHLORIDE
  6. XOLAIR [Suspect]
     Active Substance: OMALIZUMAB
     Route: 058
     Dates: start: 20130206
  7. PULMICORT TURBUHALER [Concomitant]
     Active Substance: BUDESONIDE
  8. XOLAIR [Suspect]
     Active Substance: OMALIZUMAB
     Indication: ASTHMA
     Route: 058
     Dates: start: 20121016
  9. NASONEX [Concomitant]
     Active Substance: MOMETASONE FUROATE
  10. XOLAIR [Suspect]
     Active Substance: OMALIZUMAB
     Route: 058
  11. METFORMIN [Concomitant]
     Active Substance: METFORMIN HYDROCHLORIDE

REACTIONS (20)
  - Sinusitis [Unknown]
  - Breath sounds abnormal [Unknown]
  - Urticaria [Unknown]
  - Muscle spasms [Unknown]
  - Rash pruritic [Not Recovered/Not Resolved]
  - Gastroenteritis norovirus [Recovered/Resolved]
  - Sinus disorder [Unknown]
  - Aspergillus infection [Unknown]
  - Chronic obstructive pulmonary disease [Unknown]
  - Wheezing [Unknown]
  - Fatigue [Unknown]
  - Influenza [Unknown]
  - Paraesthesia [Unknown]
  - Obstructive airways disorder [Unknown]
  - Carpal tunnel syndrome [Unknown]
  - Facial pain [Unknown]
  - Polyp [Unknown]
  - Arthritis [Unknown]
  - Faecal incontinence [Unknown]
  - Pulmonary congestion [Unknown]

NARRATIVE: CASE EVENT DATE: 20121220
